FAERS Safety Report 7095954-1 (Version None)
Quarter: 2010Q4

REPORT INFORMATION
  Report Type: 
  Country: None (occurrence: None)
  Receive Date: 20101109
  Receipt Date: 20101109
  Transmission Date: 20110411
  Serious: Yes (Hospitalization)
  Sender: FDA-Public Use
  Company Number: None

PATIENT
  Age: 59 Year
  Sex: Female
  Weight: 92.0802 kg

DRUGS (1)
  1. METRONIDAZOLE [Suspect]
     Indication: GASTROINTESTINAL INFECTION
     Dosage: 500 MG 3 TIMES PER DAY PO
     Route: 048
     Dates: start: 20101106, end: 20101107

REACTIONS (3)
  - ARRHYTHMIA [None]
  - CARDIAC FLUTTER [None]
  - ELECTROMECHANICAL DISSOCIATION [None]
